FAERS Safety Report 24397584 (Version 3)
Quarter: 2024Q4

REPORT INFORMATION
  Report Type: Report from Study
  Country: AU (occurrence: AU)
  Receive Date: 20241004
  Receipt Date: 20241018
  Transmission Date: 20250115
  Serious: Yes (Hospitalization)
  Sender: EISAI
  Company Number: AU-Eisai-EC-2024-175827

PATIENT
  Age: 73 Year
  Sex: Female

DRUGS (5)
  1. LENVATINIB [Suspect]
     Active Substance: LENVATINIB
     Indication: Uterine cancer
     Route: 048
     Dates: start: 20240729, end: 20240729
  2. PEMBROLIZUMAB [Concomitant]
     Active Substance: PEMBROLIZUMAB
     Indication: Uterine cancer
     Dosage: FREQUENCY UNKNOWN
     Route: 042
     Dates: start: 20240729
  3. FELODIPINE [Concomitant]
     Active Substance: FELODIPINE
     Indication: Hypertension
     Dosage: FREQUENCY UNKNOWN
     Route: 048
  4. LOSARTAN [Concomitant]
     Active Substance: LOSARTAN
     Indication: Hypertension
     Dosage: 50/12.5 MG. FREQUENCY UNKNOWN
     Route: 048
  5. METHADONE [Concomitant]
     Active Substance: METHADONE HYDROCHLORIDE
     Indication: Pain
     Dosage: DOSE AND FREQUENCY UNKNOWN
     Dates: start: 2024

REACTIONS (2)
  - Hypertension [Recovered/Resolved]
  - Chest discomfort [Recovered/Resolved]

NARRATIVE: CASE EVENT DATE: 20240729
